FAERS Safety Report 13298473 (Version 1)
Quarter: 2017Q1

REPORT INFORMATION
  Report Type: Spontaneous
  Country: US (occurrence: US)
  Receive Date: 20170306
  Receipt Date: 20170306
  Transmission Date: 20170428
  Serious: No
  Sender: FDA-Public Use
  Company Number: US-RARE DISEASE THERAPEUTICS, INC.-1063861

PATIENT
  Age: 18 Month
  Sex: Male

DRUGS (1)
  1. ANASCORP [Suspect]
     Active Substance: SCORPION (CENTRUROIDES) IMMUNE FAB2 ANTIVENIN (EQUINE)
     Indication: ARTHROPOD STING
     Route: 042

REACTIONS (1)
  - Catheter site extravasation [None]

NARRATIVE: CASE EVENT DATE: 20170117
